FAERS Safety Report 7221590-X (Version None)
Quarter: 2011Q1

REPORT INFORMATION
  Report Type: 
  Country: None (occurrence: None)
  Receive Date: 20110112
  Receipt Date: 20110106
  Transmission Date: 20110831
  Serious: Yes (Hospitalization)
  Sender: FDA-Public Use
  Company Number: CHPA2011GB00663

PATIENT
  Sex: Female

DRUGS (1)
  1. PARACETAMOL [Suspect]
     Dosage: 6 GRAMS, UNK
     Route: 065

REACTIONS (5)
  - ABORTION THREATENED [None]
  - DRUG EXPOSURE DURING PREGNANCY [None]
  - OVERDOSE [None]
  - ALPHA 1 FOETOPROTEIN INCREASED [None]
  - VACUUM EXTRACTOR DELIVERY [None]
